FAERS Safety Report 7277339-8 (Version None)
Quarter: 2011Q1

REPORT INFORMATION
  Report Type: 
  Country: None (occurrence: None)
  Receive Date: 20110131
  Receipt Date: 20110118
  Transmission Date: 20110831
  Serious: Yes (Hospitalization)
  Sender: FDA-Public Use
  Company Number: 2011SP002325

PATIENT
  Age: 29 Year
  Sex: Female

DRUGS (4)
  1. SEROQUEL [Concomitant]
  2. AVANZA (MIRTAZAPINE /01293201/) [Suspect]
     Indication: DEPRESSION
     Dosage: 125 MG;QD;PO
     Route: 048
  3. MAXOLON [Concomitant]
  4. EFFEXOR [Concomitant]

REACTIONS (3)
  - POSTPARTUM DEPRESSION [None]
  - HYPEREMESIS GRAVIDARUM [None]
  - DRUG EXPOSURE DURING PREGNANCY [None]
